FAERS Safety Report 8437326-0 (Version None)
Quarter: 2012Q2

REPORT INFORMATION
  Report Type: 
  Country: None (occurrence: None)
  Receive Date: 20120614
  Receipt Date: 20120308
  Transmission Date: 20120825
  Serious: No
  Sender: FDA-Public Use
  Company Number: US-AMGEN-USASP2012015209

PATIENT
  Age: 63 Year
  Sex: Male
  Weight: 77.46 kg

DRUGS (7)
  1. CARVEDILOL [Concomitant]
     Dosage: UNK
  2. NOVOLOG [Concomitant]
     Dosage: UNK
  3. XGEVA [Suspect]
     Indication: METASTASES TO BONE
     Dosage: 120 MG, ONE TIME DOSE
     Route: 058
     Dates: start: 20120131, end: 20120131
  4. MORPHINE SULFATE [Concomitant]
     Dosage: UNK
  5. DEXAMETHASONE [Concomitant]
     Dosage: UNK
  6. OXYCONTIN [Concomitant]
     Dosage: UNK
  7. HYDROCHLOROTHIAZIDE [Concomitant]
     Dosage: UNK

REACTIONS (2)
  - INFLUENZA LIKE ILLNESS [None]
  - MYALGIA [None]
